FAERS Safety Report 9492476 (Version 1)
Quarter: 2013Q3

REPORT INFORMATION
  Report Type: Spontaneous
  Country: US (occurrence: US)
  Receive Date: 20130830
  Receipt Date: 20130830
  Transmission Date: 20140515
  Serious: No
  Sender: FDA-Public Use
  Company Number: US-TEVA-429668USA

PATIENT
  Age: 18 Year
  Sex: Female
  Weight: 49.94 kg

DRUGS (3)
  1. PLAN B ONE-STEP [Suspect]
     Indication: POST COITAL CONTRACEPTION
     Dosage: 1.5 MILLIGRAM DAILY;
     Route: 048
     Dates: start: 20130821, end: 20130821
  2. ZOLOFT [Concomitant]
     Indication: DEPRESSION
  3. KLONOPIN [Concomitant]
     Indication: ANXIETY

REACTIONS (1)
  - Vomiting [Recovered/Resolved]
